FAERS Safety Report 10048667 (Version 2)
Quarter: 2014Q2

REPORT INFORMATION
  Report Type: Spontaneous
  Country: CA (occurrence: CA)
  Receive Date: 20140331
  Receipt Date: 20140411
  Transmission Date: 20141212
  Serious: Yes (Death, Hospitalization)
  Sender: FDA-Public Use
  Company Number: CA-AMGEN-CANSP2014021687

PATIENT
  Age: 79 Year
  Sex: Female
  Weight: 82 kg

DRUGS (5)
  1. PROLIA [Suspect]
     Indication: COMPRESSION FRACTURE
     Route: 065
  2. INSULIN [Concomitant]
     Indication: DIABETES MELLITUS
     Dosage: UNK
     Route: 058
     Dates: end: 20131121
  3. TRAJENTA [Concomitant]
     Indication: DIABETES MELLITUS
     Dosage: UNK UNK, QD
     Route: 048
     Dates: end: 20131121
  4. METOPROLOL [Concomitant]
     Indication: DIABETES MELLITUS
     Dosage: 25 UNK, BID
     Route: 048
     Dates: end: 20131121
  5. METOPROLOL [Concomitant]
     Indication: CARDIAC FAILURE CHRONIC

REACTIONS (4)
  - Neoplasm malignant [Fatal]
  - Dyspnoea [Fatal]
  - Renal failure acute [Fatal]
  - Pulmonary fibrosis [Fatal]
